FAERS Safety Report 25723046 (Version 2)
Quarter: 2025Q3

REPORT INFORMATION
  Report Type: Report from Study
  Country: CO (occurrence: CO)
  Receive Date: 20250825
  Receipt Date: 20250904
  Transmission Date: 20251021
  Serious: Yes (Other)
  Sender: TAKEDA
  Company Number: CO-TAKEDA-2024TUS057414

PATIENT
  Age: 63 Year
  Sex: Male
  Weight: 89.796 kg

DRUGS (1)
  1. VEDOLIZUMAB [Suspect]
     Active Substance: VEDOLIZUMAB
     Indication: Colitis ulcerative
     Dates: start: 20161205, end: 20250613

REACTIONS (9)
  - Haematochezia [Unknown]
  - Diarrhoea [Unknown]
  - Drug ineffective [Unknown]
  - Weight decreased [Unknown]
  - Treatment noncompliance [Unknown]
  - Depression [Unknown]
  - Malaise [Recovering/Resolving]
  - Pyrexia [Recovering/Resolving]
  - Influenza [Recovering/Resolving]

NARRATIVE: CASE EVENT DATE: 20250405
